FAERS Safety Report 4276953-1 (Version None)
Quarter: 2004Q1

REPORT INFORMATION
  Report Type: 
  Country: None (occurrence: None)
  Receive Date: 20040120
  Receipt Date: 20040109
  Transmission Date: 20041129
  Serious: Yes (Hospitalization)
  Sender: FDA-Public Use
  Company Number: US-JNJFOC-20030903577

PATIENT
  Age: 82 Year
  Sex: Female
  Weight: 49.4421 kg

DRUGS (11)
  1. REMICADE [Suspect]
     Indication: RHEUMATOID ARTHRITIS
     Dosage: 400 MG INTRAVENOUS
     Route: 042
     Dates: start: 20030902, end: 20030902
  2. REMICADE [Suspect]
     Indication: RHEUMATOID ARTHRITIS
     Dosage: 400 MG INTRAVENOUS
     Route: 042
     Dates: start: 20000101
  3. REMICADE [Suspect]
     Indication: RHEUMATOID ARTHRITIS
     Dosage: 400 MG INTRAVENOUS
     Route: 042
     Dates: start: 20030501
  4. METHOTREXATE SODIUM [Concomitant]
  5. PREDNISONE [Concomitant]
  6. METHOTREXATE [Concomitant]
  7. PREDNISONE [Concomitant]
  8. ALENDRONATE (ALENDRONATE SODIUM) [Concomitant]
  9. PROPOXYPHENE NAPSYLATE (DEXTROPROPOXYPHENE NAPSILATE) [Concomitant]
  10. FOLIC ACID [Concomitant]
  11. FERROUS SULFATE TAB [Concomitant]

REACTIONS (8)
  - ABDOMINAL TENDERNESS [None]
  - ARTHRALGIA [None]
  - BLASTOMYCOSIS [None]
  - BODY TEMPERATURE INCREASED [None]
  - CHILLS [None]
  - HAEMOGLOBIN DECREASED [None]
  - PAIN [None]
  - WHITE BLOOD CELL COUNT INCREASED [None]
